FAERS Safety Report 5042467-4 (Version None)
Quarter: 2006Q3

REPORT INFORMATION
  Report Type: 
  Country: None (occurrence: None)
  Receive Date: 20060705
  Receipt Date: 20060622
  Transmission Date: 20061208
  Serious: Yes (Hospitalization)
  Sender: FDA-Public Use
  Company Number: PHEH2006US08219

PATIENT
  Age: 76 Year
  Sex: Female
  Weight: 80.725 kg

DRUGS (2)
  1. ZOMETA [Suspect]
  2. AREDIA [Suspect]
     Dosage: UNK, UNK

REACTIONS (2)
  - OSTEOMYELITIS [None]
  - OSTEONECROSIS [None]
